FAERS Safety Report 17224003 (Version 5)
Quarter: 2020Q2

REPORT INFORMATION
  Report Type: Spontaneous
  Country: GB (occurrence: GB)
  Receive Date: 20200102
  Receipt Date: 20200601
  Transmission Date: 20200713
  Serious: Yes (Hospitalization, Other)
  Sender: FDA-Public Use
  Company Number: GB-PFIZER INC-2019554475

PATIENT
  Age: 47 Year
  Sex: Female
  Weight: 78 kg

DRUGS (3)
  1. LANSOPRAZOLE. [Concomitant]
     Active Substance: LANSOPRAZOLE
     Dosage: 30 MG, 1X/DAY
  2. SERTRALINE HCL [Suspect]
     Active Substance: SERTRALINE HYDROCHLORIDE
     Dosage: 200 MG, 1X/DAY
     Dates: start: 201807, end: 20180926
  3. SERTRALINE HCL [Suspect]
     Active Substance: SERTRALINE HYDROCHLORIDE
     Indication: DEPRESSION
     Dosage: 100 MG, 1X/DAY
     Dates: start: 201506, end: 2018

REACTIONS (1)
  - Hypersensitivity pneumonitis [Recovering/Resolving]

NARRATIVE: CASE EVENT DATE: 201807
